FAERS Safety Report 11972426 (Version 1)
Quarter: 2016Q1

REPORT INFORMATION
  Report Type: Spontaneous
  Country: US (occurrence: US)
  Receive Date: 20160128
  Receipt Date: 20160128
  Transmission Date: 20160526
  Serious: No
  Sender: FDA-Public Use
  Company Number: US-GLAXOSMITHKLINE-US2015GSK185098

PATIENT
  Sex: Female

DRUGS (1)
  1. ACYCLOVIR CAPSULE [Suspect]
     Active Substance: ACYCLOVIR
     Dosage: 200 MG, UNK

REACTIONS (3)
  - Abdominal discomfort [Unknown]
  - Swelling face [Unknown]
  - Pyrexia [Unknown]
